FAERS Safety Report 22168737 (Version 2)
Quarter: 2023Q2

REPORT INFORMATION
  Report Type: Spontaneous
  Country: US (occurrence: US)
  Receive Date: 20230403
  Receipt Date: 20230420
  Transmission Date: 20230721
  Serious: Yes (Hospitalization)
  Sender: FDA-Public Use
  Company Number: US-MLMSERVICE-20230327-4191248-2

PATIENT
  Age: 29 Year
  Sex: Male

DRUGS (4)
  1. DEXAMETHASONE [Suspect]
     Active Substance: DEXAMETHASONE
     Indication: Tonsillar exudate
     Dosage: UNTIL HOSPITAL DAY 6
     Route: 065
  2. DEXAMETHASONE [Suspect]
     Active Substance: DEXAMETHASONE
     Indication: Peritonsillar abscess
  3. CLINDAMYCIN [Concomitant]
     Active Substance: CLINDAMYCIN
     Indication: Tonsillar exudate
  4. CLINDAMYCIN [Concomitant]
     Active Substance: CLINDAMYCIN
     Indication: Peritonsillar abscess

REACTIONS (2)
  - Kaposi^s sarcoma AIDS related [Recovering/Resolving]
  - Condition aggravated [Recovering/Resolving]
